FAERS Safety Report 15372209 (Version 8)
Quarter: 2019Q1

REPORT INFORMATION
  Report Type: Report from Study
  Country: US (occurrence: US)
  Receive Date: 20180911
  Receipt Date: 20190204
  Transmission Date: 20190417
  Serious: Yes (Hospitalization, Other)
  Sender: FDA-Public Use
  Company Number: US-ACTELION-A-NJ2018-178279

PATIENT
  Age: 67 Year
  Sex: Male

DRUGS (3)
  1. OPSUMIT [Suspect]
     Active Substance: MACITENTAN
     Indication: PULMONARY HYPERTENSION
     Dosage: 10 MG, QD
     Route: 048
     Dates: start: 20180805, end: 20180919
  2. OPSUMIT [Suspect]
     Active Substance: MACITENTAN
     Dosage: 10 MG, QD
     Route: 048
     Dates: end: 201810
  3. REMODULIN [Concomitant]
     Active Substance: TREPROSTINIL
     Dosage: 2.5 MG, UNK
     Route: 042
     Dates: start: 201711, end: 20181025

REACTIONS (12)
  - Diarrhoea [Not Recovered/Not Resolved]
  - Blood potassium decreased [Recovering/Resolving]
  - Lower gastrointestinal haemorrhage [Unknown]
  - Dyspnoea [Not Recovered/Not Resolved]
  - Transfusion [Unknown]
  - Nausea [Not Recovered/Not Resolved]
  - Colitis [Not Recovered/Not Resolved]
  - Hypotension [Unknown]
  - Product dose omission [Not Recovered/Not Resolved]
  - Aortic valve disease [Unknown]
  - Malaise [Unknown]
  - Loss of consciousness [Recovering/Resolving]

NARRATIVE: CASE EVENT DATE: 20180916
